FAERS Safety Report 7982944-7 (Version None)
Quarter: 2011Q4

REPORT INFORMATION
  Report Type: 
  Country: None (occurrence: None)
  Receive Date: 20111215
  Receipt Date: 20111201
  Transmission Date: 20120403
  Serious: Yes (Life-Threatening, Hospitalization)
  Sender: FDA-Public Use
  Company Number: JP-MERCK-1110USA02829

PATIENT
  Age: 76 Year
  Sex: Male
  Weight: 59 kg

DRUGS (6)
  1. SINGULAIR [Suspect]
     Indication: ASTHMA
     Route: 048
     Dates: start: 20090301, end: 20110707
  2. FLUTICASONE PROPIONATE AND SALMETEROL XINAFOATE [Concomitant]
     Indication: ASTHMA
     Route: 065
     Dates: start: 20080301
  3. ZEOTIN [Concomitant]
     Indication: ASTHMA
     Route: 048
     Dates: start: 20110301
  4. ADVAIR DISKUS 100/50 [Concomitant]
     Indication: ASTHMA
     Dosage: 2 DOSAGE FORM
     Route: 055
     Dates: start: 20060301, end: 20110708
  5. MUCODYNE [Concomitant]
     Indication: ASTHMA
     Route: 048
     Dates: start: 20060301
  6. EPLERENONE [Concomitant]
     Indication: HYPERTENSION
     Route: 048
     Dates: start: 20090301, end: 20110801

REACTIONS (1)
  - ALLERGIC GRANULOMATOUS ANGIITIS [None]
